FAERS Safety Report 4507988-9 (Version None)
Quarter: 2004Q4

REPORT INFORMATION
  Report Type: 
  Country: None (occurrence: None)
  Receive Date: 20041123
  Receipt Date: 20041112
  Transmission Date: 20050328
  Serious: Yes (Other)
  Sender: FDA-Public Use
  Company Number: FR-JNJFOC-20040902834

PATIENT
  Age: 53 Year
  Sex: Female
  Weight: 50 kg

DRUGS (10)
  1. REMICADE [Suspect]
     Route: 042
  2. REMICADE [Suspect]
     Route: 042
  3. REMICADE [Suspect]
     Route: 042
  4. REMICADE [Suspect]
     Route: 042
  5. REMICADE [Suspect]
     Indication: CROHN'S DISEASE
     Route: 042
  6. REMICADE [Suspect]
     Indication: ANKYLOSING SPONDYLITIS
     Route: 042
  7. IMUREL [Concomitant]
     Indication: CROHN'S DISEASE
     Route: 049
  8. IMUREL [Concomitant]
     Indication: ANKYLOSING SPONDYLITIS
     Route: 049
  9. OROCAL D3 [Concomitant]
     Route: 049
  10. OROCAL D3 [Concomitant]
     Route: 049

REACTIONS (3)
  - DERMATITIS [None]
  - ECZEMA [None]
  - HAIR DISORDER [None]
